FAERS Safety Report 11548979 (Version 2)
Quarter: 2015Q3

REPORT INFORMATION
  Report Type: Spontaneous
  Country: US (occurrence: US)
  Receive Date: 20150903
  Receipt Date: 20150916
  Transmission Date: 20151125
  Serious: No
  Sender: FDA-Public Use
  Company Number: US-ELI_LILLY_AND_COMPANY-US201303004322

PATIENT
  Age: 67 Year
  Sex: Female
  Weight: 110.6 kg

DRUGS (10)
  1. PREVACID [Concomitant]
     Active Substance: LANSOPRAZOLE
  2. MECLIZINE [Concomitant]
     Active Substance: MECLIZINE\MECLIZINE HYDROCHLORIDE
  3. LANTUS [Concomitant]
     Active Substance: INSULIN GLARGINE
  4. METFORMIN [Concomitant]
     Active Substance: METFORMIN HYDROCHLORIDE
  5. GAS-X [Concomitant]
     Active Substance: DIMETHICONE
  6. FLEXERIL [Concomitant]
     Active Substance: CYCLOBENZAPRINE HYDROCHLORIDE
  7. TYLENOL ARTHRITIS PAIN [Concomitant]
     Active Substance: ACETAMINOPHEN
  8. ALBUTEROL. [Concomitant]
     Active Substance: ALBUTEROL
  9. LOSARTAN. [Concomitant]
     Active Substance: LOSARTAN
  10. HUMALOG [Suspect]
     Active Substance: INSULIN LISPRO
     Indication: DIABETES MELLITUS
     Dosage: UNK UNK, PRN

REACTIONS (2)
  - Cataract [Recovered/Resolved]
  - Visual impairment [Recovered/Resolved]
